FAERS Safety Report 21985001 (Version 1)
Quarter: 2023Q1

REPORT INFORMATION
  Report Type: Spontaneous
  Country: US (occurrence: None)
  Receive Date: 20230210
  Receipt Date: 20230210
  Transmission Date: 20230417
  Serious: Yes (Other)
  Sender: FDA-Public Use
  Company Number: None

PATIENT
  Age: 50 Year
  Sex: Female
  Weight: 85.5 kg

DRUGS (9)
  1. HYDROXYUREA [Suspect]
     Active Substance: HYDROXYUREA
     Indication: Essential thrombocythaemia
     Dates: start: 20210925, end: 20230109
  2. FENOFIBRATE [Concomitant]
  3. Ondensetron [Concomitant]
  4. METOPROLOL [Concomitant]
     Active Substance: METOPROLOL
  5. OZEMPIC [Concomitant]
     Active Substance: SEMAGLUTIDE
  6. MODAFINIL [Concomitant]
     Active Substance: MODAFINIL
  7. VITAMIN B12 [Concomitant]
     Active Substance: CYANOCOBALAMIN
  8. VITAMIN D3 [Concomitant]
  9. Baby aspirin 2x per day [Concomitant]

REACTIONS (9)
  - Chest pain [None]
  - Dizziness [None]
  - Nausea [None]
  - Chills [None]
  - Hypoaesthesia [None]
  - Vision blurred [None]
  - Headache [None]
  - Arthralgia [None]
  - Depression [None]

NARRATIVE: CASE EVENT DATE: 20230109
